FAERS Safety Report 8623498-1 (Version None)
Quarter: 2012Q3

REPORT INFORMATION
  Report Type: 
  Country: None (occurrence: None)
  Receive Date: 20120824
  Receipt Date: 20120824
  Transmission Date: 20120928
  Serious: No
  Sender: FDA-Public Use
  Company Number: None

PATIENT
  Age: 13 Year
  Sex: Female
  Weight: 82.5547 kg

DRUGS (2)
  1. ADVAIR DISKUS 100/50 [Concomitant]
     Indication: ASTHMA
     Dosage: BID
  2. FLONASE [Suspect]
     Indication: RHINITIS ALLERGIC
     Dosage: NASAL ONE SPRAY EACH NOSTRIL
     Route: 045
     Dates: start: 20120329, end: 20120331

REACTIONS (2)
  - ANOSMIA [None]
  - AGEUSIA [None]
